FAERS Safety Report 7358107-5 (Version None)
Quarter: 2011Q1

REPORT INFORMATION
  Report Type: 
  Country: None (occurrence: None)
  Receive Date: 20110317
  Receipt Date: 20110228
  Transmission Date: 20110831
  Serious: Yes (Other)
  Sender: FDA-Public Use
  Company Number: US-SANOFI-AVENTIS-2011SA004529

PATIENT
  Age: 57 Year
  Sex: Male

DRUGS (2)
  1. SOLOSTAR [Suspect]
     Indication: TYPE 2 DIABETES MELLITUS
     Dosage: STARTED TAKING 4-5 YEARS AGO
  2. LANTUS [Suspect]
     Indication: TYPE 2 DIABETES MELLITUS
     Dosage: STARTED TAKING 4-5 YEARS AGO DOSE:50 UNIT(S)
     Route: 058

REACTIONS (3)
  - DEVICE MALFUNCTION [None]
  - INJECTION SITE INJURY [None]
  - PRODUCT QUALITY ISSUE [None]
